FAERS Safety Report 16816021 (Version 3)
Quarter: 2022Q4

REPORT INFORMATION
  Report Type: Report from Study
  Country: US (occurrence: US)
  Receive Date: 20190917
  Receipt Date: 20221013
  Transmission Date: 20230113
  Serious: No
  Sender: FDA-Public Use
  Company Number: US-KYOWAKIRIN-2019BKK014433

PATIENT

DRUGS (5)
  1. CRYSVITA [Suspect]
     Active Substance: BUROSUMAB-TWZA
     Indication: Hypophosphataemia
     Dosage: 60 MG, MONTHLY
     Route: 058
     Dates: start: 20190627, end: 2019
  2. CRYSVITA [Suspect]
     Active Substance: BUROSUMAB-TWZA
     Dosage: 85 MG, EVERY 2 WEEKS
     Route: 058
     Dates: start: 20190712, end: 2019
  3. CRYSVITA [Suspect]
     Active Substance: BUROSUMAB-TWZA
     Indication: Hypophosphataemia
     Dosage: 20, MONTHLY
     Route: 058
     Dates: start: 20190627, end: 2019
  4. CRYSVITA [Suspect]
     Active Substance: BUROSUMAB-TWZA
     Dosage: 85 MG, EVERY 4 WEEKS
     Route: 058
     Dates: start: 20190712, end: 2019
  5. CRYSVITA [Suspect]
     Active Substance: BUROSUMAB-TWZA
     Indication: Hereditary hypophosphataemic rickets
     Dosage: 80 MG, 1X/4 WEEKS
     Route: 065
     Dates: start: 20211109

REACTIONS (8)
  - Blood magnesium decreased [Unknown]
  - Blood zinc decreased [Unknown]
  - Pain in extremity [Unknown]
  - Headache [Unknown]
  - Vitamin D decreased [Unknown]
  - Pain [Unknown]
  - Incorrect dose administered [Unknown]
  - Product dose omission issue [Unknown]

NARRATIVE: CASE EVENT DATE: 20190101
